FAERS Safety Report 9679256 (Version 1)
Quarter: 2013Q4

REPORT INFORMATION
  Report Type: Spontaneous
  Country: CA (occurrence: CA)
  Receive Date: 20131109
  Receipt Date: 20131109
  Transmission Date: 20140711
  Serious: Yes (Death)
  Sender: FDA-Public Use
  Company Number: CA-ROCHE-1298717

PATIENT
  Age: 59 Year
  Sex: Male

DRUGS (2)
  1. RITUXAN [Suspect]
     Indication: COLD TYPE HAEMOLYTIC ANAEMIA
     Route: 042
  2. SOLIRIS [Suspect]
     Indication: COLD TYPE HAEMOLYTIC ANAEMIA
     Route: 042

REACTIONS (2)
  - Death [Fatal]
  - Off label use [Unknown]
